FAERS Safety Report 17882604 (Version 1)
Quarter: 2020Q2

REPORT INFORMATION
  Report Type: Report from Study
  Country: US (occurrence: US)
  Receive Date: 20200610
  Receipt Date: 20200610
  Transmission Date: 20200714
  Serious: Yes (Hospitalization)
  Sender: FDA-Public Use
  Company Number: US-EISAI MEDICAL RESEARCH-EC-2020-075282

PATIENT
  Age: 66 Year
  Sex: Male
  Weight: 75 kg

DRUGS (19)
  1. TYLENOL [Concomitant]
     Active Substance: ACETAMINOPHEN
  2. DIPHENOXYLATE-ATROPINE [Concomitant]
     Active Substance: ATROPINE\DIPHENOXYLATE
  3. HYDROCORTISONE. [Concomitant]
     Active Substance: HYDROCORTISONE
  4. ADVIL [Concomitant]
     Active Substance: IBUPROFEN
  5. LENVIMA [Suspect]
     Active Substance: LENVATINIB
     Indication: RENAL CANCER
     Route: 048
     Dates: start: 20200510, end: 202005
  6. AFINITOR [Concomitant]
     Active Substance: EVEROLIMUS
  7. ANTACID [Concomitant]
     Active Substance: ALUMINUM HYDROXIDE\CALCIUM CARBONATE\DIMETHICONE\MAGNESIUM HYDROXIDE
  8. IMODIUM [Concomitant]
     Active Substance: LOPERAMIDE HYDROCHLORIDE
  9. LISINOPRIL. [Concomitant]
     Active Substance: LISINOPRIL
  10. NIFEDIPINE. [Concomitant]
     Active Substance: NIFEDIPINE
  11. AUGMENTIN [Concomitant]
     Active Substance: AMOXICILLIN\CLAVULANATE POTASSIUM
  12. LENVIMA [Suspect]
     Active Substance: LENVATINIB
     Route: 048
     Dates: start: 202005
  13. ONDANSETRON [Concomitant]
     Active Substance: ONDANSETRON
  14. CABOMETYX [Concomitant]
     Active Substance: CABOZANTINIB S-MALATE
  15. LEVOTHYROXINE. [Concomitant]
     Active Substance: LEVOTHYROXINE
  16. ASPIRIN. [Concomitant]
     Active Substance: ASPIRIN
  17. PREGABALIN. [Concomitant]
     Active Substance: PREGABALIN
  18. LEVETIRACETAM. [Concomitant]
     Active Substance: LEVETIRACETAM
  19. INLYTA [Concomitant]
     Active Substance: AXITINIB

REACTIONS (7)
  - Dehydration [Unknown]
  - Vomiting [Unknown]
  - Fatigue [Unknown]
  - Lethargy [Unknown]
  - Nausea [Unknown]
  - Decreased appetite [Unknown]
  - Blood pressure increased [Unknown]

NARRATIVE: CASE EVENT DATE: 2020
